FAERS Safety Report 5758636-1 (Version None)
Quarter: 2008Q2

REPORT INFORMATION
  Report Type: 
  Country: None (occurrence: None)
  Receive Date: 20080530
  Receipt Date: 20080521
  Transmission Date: 20081010
  Serious: Yes (Death)
  Sender: FDA-Public Use
  Company Number: TCI2008A02516

PATIENT
  Age: 87 Year
  Sex: Male

DRUGS (7)
  1. LEUPROLIDE ACETATE [Suspect]
     Indication: PROSTATE CANCER STAGE II
     Dosage: 11.25 MG (11.25 MG, 1 IN 12 WK) SUBCUTANEOUS
     Route: 058
     Dates: start: 20070921, end: 20070921
  2. CHLORMADINONE ACETATE TAB [Concomitant]
  3. ARTIST (CARVEDILOL) (TABLETS) [Concomitant]
  4. LANIRAPID (METILDIGOXIN) (TABLETS) [Concomitant]
  5. WARFARIN SODIUM [Concomitant]
  6. LASIX [Concomitant]
  7. ALDACTONE A (SPIRONOLACTONE) (TABLETS) [Concomitant]

REACTIONS (2)
  - DYSPHAGIA [None]
  - PNEUMONIA ASPIRATION [None]
